FAERS Safety Report 8333709 (Version 6)
Quarter: 2013Q3

REPORT INFORMATION
  Report Type: Report from Study
  Country: US (occurrence: US)
  Receive Date: 20120112
  Receipt Date: 20130731
  Transmission Date: 20140515
  Serious: Yes (Hospitalization)
  Sender: FDA-Public Use
  Company Number: US-ACTELION-A-US2012-59251

PATIENT
  Age: 35 Year
  Sex: Female

DRUGS (2)
  1. TRACLEER [Suspect]
     Indication: PULMONARY ARTERIAL HYPERTENSION
     Dosage: UNK MG, UNK
     Route: 048
     Dates: start: 20101004
  2. COUMADIN [Concomitant]

REACTIONS (4)
  - Sepsis [Unknown]
  - Catheter placement [Unknown]
  - Catheter removal [Unknown]
  - Vein disorder [Unknown]
